FAERS Safety Report 20982881 (Version 1)
Quarter: 2022Q2

REPORT INFORMATION
  Report Type: Spontaneous
  Country: US (occurrence: US)
  Receive Date: 20220620
  Receipt Date: 20220620
  Transmission Date: 20220721
  Serious: No
  Sender: FDA-Public Use
  Company Number: US-BRISTOL-MYERS SQUIBB COMPANY-2022-059548

PATIENT
  Age: 78 Year
  Sex: Female

DRUGS (1)
  1. REVLIMID [Suspect]
     Active Substance: LENALIDOMIDE
     Indication: Myelodysplastic syndrome
     Dosage: DAILY 7 DAYS ON FOLLOWED BY 7 DAYS OFF AND REPEAT FOR TOTAL 28 DAY CYCLE.
     Route: 048
     Dates: start: 20210120

REACTIONS (1)
  - Urinary tract infection [Recovered/Resolved]
